FAERS Safety Report 7778438 (Version 5)
Quarter: 2013Q2

REPORT INFORMATION
  Report Type: Spontaneous
  Country: CZ (occurrence: None)
  Receive Date: 20110105
  Receipt Date: 20130528
  Transmission Date: 20140414
  Serious: Yes (Life-Threatening, Hospitalization)
  Sender: FDA-Public Use
  Company Number: CZ-021560

PATIENT
  Age: 66 Year
  Sex: Male
  Weight: 91 kg

DRUGS (14)
  1. CHLORAMBUCIL [Suspect]
     Indication: CHRONIC LYMPHOCYTIC LEUKAEMIA
     Dosage: 10MG/M2, DAYS 1-7 EVERY 28 DAYS ORAL
     Route: 048
     Dates: start: 20101116
  2. PIRITRAMIDE (PIRITRAMIDE) [Concomitant]
  3. NAPHAZOLINE(NAPHAZOLINE) [Concomitant]
  4. PAMYCON(BACITRACIN, NEOMYCIN) [Concomitant]
  5. CETIRIZINE HYDROCHLORIDE(CETIRIZINE) [Concomitant]
  6. CORSODYL(CHLORHEXIDINE) [Concomitant]
  7. GELCLAIR(STOMATOLOGICAL PREPARATIONS [Concomitant]
  8. MESOCAIN(TRIMECAINE HYDROCHLORIDE [Concomitant]
  9. VERAL(DICLOFENAC) (UNKNOWN) [Concomitant]
  10. TANTUM VERDE(BENZYDAMINE) (UNKNOWN) [Concomitant]
  11. CALCIUM CARBONATE(CALCIUM CARBONATE [Concomitant]
  12. KALNORMIN(POTASSIUM CHLORIDE [Concomitant]
  13. FUROSEMIDE(FUROSEMIDE [Concomitant]
  14. HEPARIN(HEPARIN [Concomitant]

REACTIONS (3)
  - Oral herpes [None]
  - Febrile neutropenia [None]
  - C-reactive protein increased [None]
